FAERS Safety Report 25802606 (Version 3)
Quarter: 2025Q4

REPORT INFORMATION
  Report Type: Spontaneous
  Country: US (occurrence: US)
  Receive Date: 20250915
  Receipt Date: 20251105
  Transmission Date: 20260117
  Serious: Yes (Other)
  Sender: SANOFI AVENTIS
  Company Number: US-SANOFI-02640300

PATIENT
  Age: 72 Year
  Sex: Female

DRUGS (3)
  1. DUPIXENT [Suspect]
     Active Substance: DUPILUMAB
     Indication: Neurodermatitis
     Dosage: 600 MG, 1X
     Route: 058
     Dates: start: 20250729, end: 20250729
  2. DUPIXENT [Suspect]
     Active Substance: DUPILUMAB
     Indication: Dermatitis atopic
     Dosage: 300 MG, QOW
     Route: 058
     Dates: start: 20250812
  3. PREDNISONE [Suspect]
     Active Substance: PREDNISONE

REACTIONS (14)
  - Retinal tear [Unknown]
  - Cataract [Unknown]
  - Deafness [Not Recovered/Not Resolved]
  - Suture rupture [Unknown]
  - Eye pruritus [Unknown]
  - Eye irritation [Unknown]
  - Vitreous floaters [Unknown]
  - Hypoaesthesia [Not Recovered/Not Resolved]
  - Alopecia [Not Recovered/Not Resolved]
  - Dry mouth [Not Recovered/Not Resolved]
  - Back pain [Unknown]
  - Dizziness [Not Recovered/Not Resolved]
  - Dry eye [Recovered/Resolved]
  - Neurodermatitis [Unknown]

NARRATIVE: CASE EVENT DATE: 20250101
